FAERS Safety Report 22248130 (Version 2)
Quarter: 2023Q2

REPORT INFORMATION
  Report Type: Report from Study
  Country: CN (occurrence: CN)
  Receive Date: 20230425
  Receipt Date: 20230517
  Transmission Date: 20230721
  Serious: Yes (Death, Hospitalization, Other)
  Sender: FDA-Public Use
  Company Number: CN-SUN PHARMACEUTICAL INDUSTRIES LTD-2023R1-386161

PATIENT
  Age: 57 Year
  Sex: Male

DRUGS (5)
  1. PREDNISONE [Suspect]
     Active Substance: PREDNISONE
     Indication: Acute lymphocytic leukaemia
     Dosage: 40 MILLIGRAM/SQ. METER/ ON DAY 1 AND 5
     Route: 065
  2. VINCRISTINE [Suspect]
     Active Substance: VINCRISTINE
     Indication: Acute lymphocytic leukaemia
     Dosage: 2 MILLIGRAM/ ON DAY 1
     Route: 065
  3. AZACITIDINE [Suspect]
     Active Substance: AZACITIDINE
     Indication: Acute lymphocytic leukaemia
     Dosage: 100 MILLIGRAM/ ON DAY 1-7
  4. TUCIDINOSTAT [Suspect]
     Active Substance: TUCIDINOSTAT
     Indication: Acute lymphocytic leukaemia
     Dosage: 30 MILLIGRAM/ TWICE A WEEK
     Route: 065
  5. CYCLOPHOSPHAMIDE [Suspect]
     Active Substance: CYCLOPHOSPHAMIDE
     Indication: Acute lymphocytic leukaemia
     Dosage: 750 MILLIGRAM/SQ. METER/ ON DAY 1 AND 15
     Route: 065

REACTIONS (6)
  - Disease progression [Fatal]
  - Infection [Fatal]
  - Therapy non-responder [Unknown]
  - Myelosuppression [Unknown]
  - Agranulocytosis [Unknown]
  - Thrombocytopenia [Unknown]
